FAERS Safety Report 12368200 (Version 1)
Quarter: 2016Q2

REPORT INFORMATION
  Report Type: Spontaneous
  Country: GR (occurrence: GR)
  Receive Date: 20160513
  Receipt Date: 20160513
  Transmission Date: 20160815
  Serious: Yes (Death)
  Sender: FDA-Public Use
  Company Number: GR-SA-2016SA091633

PATIENT
  Age: 60 Year
  Sex: Male

DRUGS (1)
  1. RASBURICASE [Suspect]
     Active Substance: RASBURICASE
     Route: 042

REACTIONS (2)
  - Drug ineffective [Fatal]
  - Tumour lysis syndrome [Fatal]
